FAERS Safety Report 12594423 (Version 1)
Quarter: 2016Q3

REPORT INFORMATION
  Report Type: Spontaneous
  Country: US (occurrence: US)
  Receive Date: 20160726
  Receipt Date: 20160726
  Transmission Date: 20161109
  Serious: No
  Sender: FDA-Public Use
  Company Number: US-UNITED THERAPEUTICS-UNT-2016-007405

PATIENT
  Age: 58 Year
  Sex: Female
  Weight: 69.84 kg

DRUGS (6)
  1. LETAIRIS [Suspect]
     Active Substance: AMBRISENTAN
     Indication: PRODUCT USED FOR UNKNOWN INDICATION
     Dosage: 5 MG, QD
     Route: 065
     Dates: start: 20160504
  2. LETAIRIS [Suspect]
     Active Substance: AMBRISENTAN
     Dosage: UNK
     Dates: start: 20160505
  3. REMODULIN [Suspect]
     Active Substance: TREPROSTINIL
     Dosage: 0.032 ?G/KG, CONTINUING
     Route: 058
  4. REMODULIN [Suspect]
     Active Substance: TREPROSTINIL
     Indication: PULMONARY ARTERIAL HYPERTENSION
     Dosage: 0.011 ?G/KG, CONTINUING
     Route: 058
     Dates: start: 20160408
  5. REMODULIN [Suspect]
     Active Substance: TREPROSTINIL
     Dosage: 0.022 ?G/KG, CONTINUING
     Route: 058
  6. OXYGEN. [Concomitant]
     Active Substance: OXYGEN
     Indication: PRODUCT USED FOR UNKNOWN INDICATION

REACTIONS (11)
  - Localised oedema [Unknown]
  - Mobility decreased [Unknown]
  - Infusion site pain [Unknown]
  - Hypotension [Unknown]
  - Oedema peripheral [Unknown]
  - Fluid retention [Unknown]
  - Back pain [Unknown]
  - Dyspnoea exertional [Unknown]
  - Fatigue [Unknown]
  - Dark circles under eyes [Unknown]
  - Face oedema [Unknown]

NARRATIVE: CASE EVENT DATE: 201605
